FAERS Safety Report 4300592-7 (Version None)
Quarter: 2004Q1

REPORT INFORMATION
  Report Type: 
  Country: None (occurrence: None)
  Receive Date: 20040220
  Receipt Date: 20040213
  Transmission Date: 20041129
  Serious: Yes (Hospitalization)
  Sender: FDA-Public Use
  Company Number: DE-ROCHE-358853

PATIENT
  Age: 29 Year
  Sex: Male
  Weight: 90 kg

DRUGS (4)
  1. PEGASYS [Suspect]
     Route: 058
     Dates: start: 20031209, end: 20040202
  2. RIBAVIRIN [Concomitant]
     Route: 048
     Dates: start: 20031209, end: 20040206
  3. HUMALOG [Concomitant]
     Dosage: DOSING REGIMEN: TO BLOOD SUGAR
     Route: 058
  4. LANTUS [Concomitant]
     Dosage: UNITS REPORTED AS IE
     Route: 058

REACTIONS (2)
  - BLOOD GLUCOSE DECREASED [None]
  - EPILEPSY [None]
